FAERS Safety Report 9849819 (Version 1)
Quarter: 2014Q1

REPORT INFORMATION
  Report Type: Spontaneous
  Country: US (occurrence: US)
  Receive Date: 20140128
  Receipt Date: 20140128
  Transmission Date: 20141002
  Serious: Yes (Other)
  Sender: FDA-Public Use
  Company Number: US-JNJCP-30000196524

PATIENT
  Age: 62 Year
  Sex: Female
  Weight: 144 kg

DRUGS (6)
  1. AVEENO POSITIVELY RADIANT DAILY MOISTURIZER SPF30 MEDIUM TINT [Suspect]
     Indication: DRY SKIN PROPHYLAXIS
     Dosage: NICKLE SIZE AMOUNT ONCE PER DAY
     Route: 061
     Dates: start: 20131223, end: 20131226
  2. LISINOPRIL [Concomitant]
     Indication: HYPERTENSION
     Dosage: 20 MG ONCE OER DAY SINCE TEN YEARS
  3. FLUOXETINE [Concomitant]
     Indication: PRODUCT USED FOR UNKNOWN INDICATION
  4. GLIPIZIDE [Concomitant]
     Indication: DIABETES MELLITUS
  5. LANTUS [Concomitant]
     Indication: DIABETES MELLITUS
  6. HUMALOG [Concomitant]
     Indication: DIABETES MELLITUS

REACTIONS (1)
  - Urticaria [Recovered/Resolved]
